FAERS Safety Report 10042299 (Version 13)
Quarter: 2018Q1

REPORT INFORMATION
  Report Type: Report from Study
  Country: US (occurrence: US)
  Receive Date: 20140327
  Receipt Date: 20180226
  Transmission Date: 20180508
  Serious: Yes (Hospitalization, Other)
  Sender: FDA-Public Use
  Company Number: US-SA-2013SA125352

PATIENT
  Age: 69 Year
  Sex: Male

DRUGS (17)
  1. VITAMIN D3 [Concomitant]
     Active Substance: CHOLECALCIFEROL
  2. AUBAGIO [Suspect]
     Active Substance: TERIFLUNOMIDE
     Indication: MULTIPLE SCLEROSIS
     Dosage: SINCE 19 MARCH
     Route: 048
     Dates: start: 20130319, end: 20140316
  3. LIDOCAINE. [Concomitant]
     Active Substance: LIDOCAINE
     Indication: BACK PAIN
     Dosage: PATCH
  4. OMEGA 3 [Concomitant]
     Active Substance: OMEGA-3 FATTY ACIDS
  5. QUETIAPINE. [Concomitant]
     Active Substance: QUETIAPINE
     Route: 065
  6. FLUOXETINE [Concomitant]
     Active Substance: FLUOXETINE HYDROCHLORIDE
     Route: 065
  7. AMPYRA [Suspect]
     Active Substance: DALFAMPRIDINE
     Route: 065
  8. CEPHALEXIN. [Concomitant]
     Active Substance: CEPHALEXIN
     Route: 065
  9. VITAMIN C [Concomitant]
     Active Substance: ASCORBIC ACID
     Route: 065
  10. AUBAGIO [Suspect]
     Active Substance: TERIFLUNOMIDE
     Indication: MULTIPLE SCLEROSIS
     Route: 048
     Dates: end: 20151030
  11. TOVIAZ [Concomitant]
     Active Substance: FESOTERODINE FUMARATE
     Indication: URINARY INCONTINENCE
  12. LIDOCAINE. [Concomitant]
     Active Substance: LIDOCAINE
     Indication: MUSCULOSKELETAL PAIN
     Dosage: PATCH
  13. TUMS [Concomitant]
     Active Substance: CALCIUM CARBONATE
  14. METOPROLOL. [Concomitant]
     Active Substance: METOPROLOL
     Route: 065
  15. AUBAGIO [Suspect]
     Active Substance: TERIFLUNOMIDE
     Indication: MULTIPLE SCLEROSIS
     Route: 048
     Dates: start: 20151201
  16. ALENDRONATE [Concomitant]
     Active Substance: ALENDRONATE SODIUM
     Route: 065
  17. FUROSEMIDE. [Concomitant]
     Active Substance: FUROSEMIDE
     Route: 065

REACTIONS (26)
  - Body temperature increased [Recovering/Resolving]
  - Unevaluable event [Unknown]
  - Feeling cold [Unknown]
  - Tremor [Unknown]
  - Haemoglobin decreased [Unknown]
  - Rib fracture [Unknown]
  - Dysstasia [Recovering/Resolving]
  - Drug dose omission [Unknown]
  - Sepsis [Unknown]
  - Pruritus [Not Recovered/Not Resolved]
  - Gait disturbance [Unknown]
  - Dehydration [Recovering/Resolving]
  - Meningitis [Recovering/Resolving]
  - Varicose vein [Unknown]
  - Burning sensation [Unknown]
  - Alopecia [Unknown]
  - Diarrhoea [Unknown]
  - Malaise [Recovering/Resolving]
  - Vomiting [Unknown]
  - Pain [Unknown]
  - Fall [Unknown]
  - Urinary tract infection [Unknown]
  - Hypoacusis [Unknown]
  - Peripheral swelling [Unknown]
  - Constipation [Unknown]
  - Mental disorder [Unknown]

NARRATIVE: CASE EVENT DATE: 2014
